FAERS Safety Report 23693339 (Version 2)
Quarter: 2024Q2

REPORT INFORMATION
  Report Type: Spontaneous
  Country: US (occurrence: US)
  Receive Date: 20240401
  Receipt Date: 20240502
  Transmission Date: 20240716
  Serious: No
  Sender: FDA-Public Use
  Company Number: US-PFIZER INC-202400074566

PATIENT
  Age: 44 Year
  Sex: Female
  Weight: 115.3 kg

DRUGS (2)
  1. ROCURONIUM BROMIDE [Suspect]
     Active Substance: ROCURONIUM BROMIDE
     Indication: Paralysis
     Dosage: ROCURONIUM BROMIDE 50MG /5ML
  2. ROCURONIUM BROMIDE [Suspect]
     Active Substance: ROCURONIUM BROMIDE
     Indication: Surgery
     Dosage: 50 MG + 50 MG
     Route: 042
     Dates: start: 20240308

REACTIONS (1)
  - Therapeutic product effect incomplete [Recovered/Resolved]

NARRATIVE: CASE EVENT DATE: 20240308
